FAERS Safety Report 24770035 (Version 1)
Quarter: 2024Q4

REPORT INFORMATION
  Report Type: Spontaneous
  Country: US (occurrence: US)
  Receive Date: 20241224
  Receipt Date: 20241224
  Transmission Date: 20250115
  Serious: Yes (Hospitalization, Other)
  Sender: AZURITY PHARMACEUTICALS
  Company Number: US-AZURITY PHARMACEUTICALS, INC.-AZR202412-001314

PATIENT
  Age: 45 Year
  Sex: Male

DRUGS (2)
  1. BACLOFEN [Suspect]
     Active Substance: BACLOFEN
     Indication: Product used for unknown indication
     Dosage: UNK
     Route: 037
  2. BACLOFEN [Suspect]
     Active Substance: BACLOFEN
     Dosage: UNK
     Route: 048

REACTIONS (7)
  - Cardiac arrest [Recovering/Resolving]
  - Respiratory failure [Unknown]
  - Ventricular tachycardia [Unknown]
  - Electrocardiogram QT prolonged [Recovered/Resolved]
  - Mental status changes [Recovering/Resolving]
  - Overdose [Unknown]
  - Toxicity to various agents [Unknown]
